FAERS Safety Report 9019521 (Version 1)
Quarter: 2013Q1

REPORT INFORMATION
  Report Type: Report from Study
  Country: US (occurrence: US)
  Receive Date: 20130118
  Receipt Date: 20130118
  Transmission Date: 20140127
  Serious: Yes (Other)
  Sender: FDA-Public Use
  Company Number: US-BAYER-2012-129304

PATIENT
  Age: 54 Year
  Sex: Male

DRUGS (1)
  1. STIVARGA [Suspect]
     Indication: COLON CANCER
     Dosage: 40 MG, 4 TABLETS QD (IN THE EVENING)
     Route: 048
     Dates: start: 20121130

REACTIONS (7)
  - Motor dysfunction [None]
  - Erythema [Not Recovered/Not Resolved]
  - Nausea [Recovered/Resolved]
  - Dysphonia [Not Recovered/Not Resolved]
  - Fatigue [Not Recovered/Not Resolved]
  - Genital rash [Not Recovered/Not Resolved]
  - Oral pain [Not Recovered/Not Resolved]
